FAERS Safety Report 12271294 (Version 2)
Quarter: 2016Q3

REPORT INFORMATION
  Report Type: Spontaneous
  Country: FR (occurrence: FR)
  Receive Date: 20160415
  Receipt Date: 20160705
  Transmission Date: 20161109
  Serious: Yes (Other)
  Sender: FDA-Public Use
  Company Number: FR-ROCHE-1742843

PATIENT
  Sex: Female
  Weight: 76 kg

DRUGS (1)
  1. XOLAIR [Suspect]
     Active Substance: OMALIZUMAB
     Indication: ASTHMA
     Route: 058
     Dates: start: 201601

REACTIONS (5)
  - Erythema [Unknown]
  - Bronchospasm [Unknown]
  - Hyperhidrosis [Unknown]
  - Cough [Unknown]
  - Chest discomfort [Unknown]
